FAERS Safety Report 13099387 (Version 3)
Quarter: 2017Q3

REPORT INFORMATION
  Report Type: Spontaneous
  Country: US (occurrence: US)
  Receive Date: 20170109
  Receipt Date: 20170911
  Transmission Date: 20171127
  Serious: Yes (Death)
  Sender: FDA-Public Use
  Company Number: US-CELGENEUS-USA-2016128048

PATIENT
  Age: 66 Year
  Sex: Male
  Weight: 66.19 kg

DRUGS (11)
  1. KONSYL [Concomitant]
     Active Substance: PSYLLIUM HUSK
     Indication: PRODUCT USED FOR UNKNOWN INDICATION
     Dosage: .52 GRAM
     Route: 048
  2. REVLIMID [Suspect]
     Active Substance: LENALIDOMIDE
     Indication: PLASMA CELL MYELOMA
     Dosage: 25 MILLIGRAM
     Route: 048
     Dates: start: 20161210, end: 20161213
  3. LEVAQUIN [Concomitant]
     Indication: INFECTION
     Dosage: 2250 MILLIGRAM
     Route: 065
     Dates: start: 20161111, end: 20161216
  4. DEXAMETHASONE [Concomitant]
     Indication: PRODUCT USED FOR UNKNOWN INDICATION
     Dosage: 0.5
     Route: 065
  5. DEXAMETHASONE [Concomitant]
     Dosage: 10 MILLIGRAM
     Route: 048
     Dates: start: 20161206, end: 20161216
  6. ONDANSETRON HCL [Concomitant]
     Active Substance: ONDANSETRON HYDROCHLORIDE
     Indication: PRODUCT USED FOR UNKNOWN INDICATION
     Dosage: 4
     Route: 065
  7. BENZONATATE. [Concomitant]
     Active Substance: BENZONATATE
     Indication: COUGH
     Dosage: 300 MILLIGRAM
     Route: 048
     Dates: start: 20161206, end: 20161216
  8. ACYCLOVIR [Concomitant]
     Indication: PLASMA CELL MYELOMA
     Dosage: 800 MILLIGRAM
     Route: 048
     Dates: start: 20161202, end: 20161216
  9. ASPIRIN [Concomitant]
     Indication: PRODUCT USED FOR UNKNOWN INDICATION
     Dosage: 325 MILLIGRAM
     Route: 065
  10. DOCUSATE SODIUM [Concomitant]
     Indication: CONSTIPATION
     Dosage: 500 MILLIGRAM
     Route: 065
     Dates: start: 20161206, end: 20161216
  11. SODIUM BICARBONATE [Concomitant]
     Indication: CARDIAC ARREST
     Dosage: 1 AMP X 2
     Route: 041
     Dates: start: 20161216, end: 20161216

REACTIONS (1)
  - Streptococcal sepsis [Fatal]

NARRATIVE: CASE EVENT DATE: 201612
